FAERS Safety Report 8445254 (Version 7)
Quarter: 2013Q3

REPORT INFORMATION
  Report Type: Report from Study
  Country: DE (occurrence: DE)
  Receive Date: 20120307
  Receipt Date: 20130808
  Transmission Date: 20140515
  Serious: Yes (Hospitalization)
  Sender: FDA-Public Use
  Company Number: DE-ROCHE-1042519

PATIENT
  Age: 50 Year
  Sex: Female
  Weight: 76 kg

DRUGS (11)
  1. DOXORUBICIN [Suspect]
     Indication: BREAST CANCER
     Dosage: LAST DOSE PRIOR TO SAE: 24 FEB 2012
     Route: 065
     Dates: start: 20120124, end: 20120221
  2. DOXORUBICIN [Suspect]
     Dosage: LAST DOSE PRIOR TO SAE: 24 APR 2012
     Route: 065
     Dates: start: 20120228, end: 20120502
  3. DOXORUBICIN [Suspect]
     Dosage: LAST DOSE PRIOR TO SAE: 24 APR 2012
     Route: 065
     Dates: start: 20120508
  4. PACLITAXEL [Suspect]
     Indication: BREAST CANCER
     Dosage: LAST DOSE PRIOR TO SAE: 24 FEB 2012
     Route: 065
     Dates: start: 20120124, end: 20120221
  5. PACLITAXEL [Suspect]
     Route: 065
     Dates: start: 20120228, end: 20120502
  6. PACLITAXEL [Suspect]
     Route: 065
     Dates: start: 20120508
  7. TRASTUZUMAB [Suspect]
     Indication: BREAST CANCER
     Dosage: LAST DOSE PRIOR TO SAE: 14 FEB 2012
     Route: 065
     Dates: start: 20120124, end: 20120221
  8. TRASTUZUMAB [Suspect]
     Dosage: LAST DOSE PRIOR TO SAE: 17 APR 2012
     Route: 065
     Dates: start: 20120228
  9. LAPATINIB [Suspect]
     Indication: BREAST CANCER
     Dosage: LAST DOSE PRIOR TO SAE: 20 FEB 2012
     Route: 048
     Dates: start: 20120124, end: 20120221
  10. LAPATINIB [Suspect]
     Dosage: DAILY
     Route: 048
     Dates: start: 20120228, end: 20120501
  11. LAPATINIB [Suspect]
     Dosage: DAILY
     Route: 048
     Dates: start: 20120515

REACTIONS (2)
  - General physical health deterioration [Recovered/Resolved]
  - Pyrexia [Recovered/Resolved]
